FAERS Safety Report 17084357 (Version 6)
Quarter: 2020Q1

REPORT INFORMATION
  Report Type: Report from Study
  Country: US (occurrence: US)
  Receive Date: 20191127
  Receipt Date: 20200324
  Transmission Date: 20200409
  Serious: Yes (Life-Threatening, Other)
  Sender: FDA-Public Use
  Company Number: US-GLAXOSMITHKLINE-US2019TSO200090

PATIENT
  Sex: Female

DRUGS (5)
  1. ZOFRAN [Suspect]
     Active Substance: ONDANSETRON HYDROCHLORIDE
     Indication: PROPHYLAXIS
     Dosage: UNK
  2. NIRAPARIB [Suspect]
     Active Substance: NIRAPARIB
     Dosage: 100 MG DAILY
     Route: 065
     Dates: start: 201912, end: 202001
  3. NIRAPARIB [Suspect]
     Active Substance: NIRAPARIB
     Dosage: 200 MG, QD
     Dates: start: 20191101
  4. NIRAPARIB [Suspect]
     Active Substance: NIRAPARIB
     Dosage: 100 MG, QD
     Dates: start: 20200219
  5. NIRAPARIB [Suspect]
     Active Substance: NIRAPARIB
     Indication: OVARIAN CANCER
     Dosage: 200 MG, Q PM W/FOOD
     Dates: start: 20191024

REACTIONS (19)
  - Weight decreased [Unknown]
  - Platelet count decreased [Not Recovered/Not Resolved]
  - Rhinorrhoea [Unknown]
  - Oropharyngeal pain [Not Recovered/Not Resolved]
  - Haemoglobin decreased [Not Recovered/Not Resolved]
  - Decreased appetite [Unknown]
  - Retching [Unknown]
  - Fatigue [Not Recovered/Not Resolved]
  - Dizziness [Unknown]
  - Influenza [Recovered/Resolved]
  - Appetite disorder [Unknown]
  - Hypertension [Not Recovered/Not Resolved]
  - Ear discomfort [Unknown]
  - Urine abnormality [Unknown]
  - Constipation [Unknown]
  - Sinus disorder [Recovered/Resolved]
  - Tinnitus [Unknown]
  - Blood creatinine increased [Unknown]
  - Vertigo [Unknown]
